FAERS Safety Report 21882842 (Version 1)
Quarter: 2023Q1

REPORT INFORMATION
  Report Type: Report from Study
  Country: CO (occurrence: CO)
  Receive Date: 20230119
  Receipt Date: 20230119
  Transmission Date: 20230417
  Serious: Yes (Hospitalization, Other)
  Sender: FDA-Public Use
  Company Number: CO-ABBVIE-4274767

PATIENT
  Sex: Male
  Weight: 58 kg

DRUGS (1)
  1. ZEMPLAR [Suspect]
     Active Substance: PARICALCITOL
     Indication: Hyperparathyroidism secondary
     Route: 042
     Dates: start: 20140424

REACTIONS (13)
  - Blood phosphorus abnormal [Recovered/Resolved]
  - Insomnia [Recovering/Resolving]
  - Muscle spasms [Recovering/Resolving]
  - Weight decreased [Recovering/Resolving]
  - Influenza [Recovered/Resolved]
  - Device issue [Recovered/Resolved]
  - Gait disturbance [Recovering/Resolving]
  - Back pain [Recovering/Resolving]
  - Inflammation [Recovered/Resolved]
  - Catheter placement [Recovered/Resolved]
  - Blood phosphorus abnormal [Recovering/Resolving]
  - Unevaluable event [Recovered/Resolved]
  - Fluid retention [Recovering/Resolving]

NARRATIVE: CASE EVENT DATE: 20210101
